FAERS Safety Report 14561140 (Version 2)
Quarter: 2018Q1

REPORT INFORMATION
  Report Type: Report from Study
  Country: None (occurrence: TR)
  Receive Date: 20180222
  Receipt Date: 20180326
  Transmission Date: 20180509
  Serious: Yes (Death, Hospitalization)
  Sender: FDA-Public Use
  Company Number: TR-ABBVIE-18K-161-2264848-00

PATIENT
  Age: 68 Year
  Sex: Male

DRUGS (5)
  1. LAROXYL [Concomitant]
     Active Substance: AMITRIPTYLINE HYDROCHLORIDE
     Indication: DEPRESSION
     Route: 048
     Dates: start: 20160101, end: 20180218
  2. PK-MERZ [Concomitant]
     Active Substance: AMANTADINE
     Indication: PARKINSON^S DISEASE
     Route: 048
     Dates: start: 20151222, end: 20180218
  3. DUODOPA [Suspect]
     Active Substance: CARBIDOPA\LEVODOPA
     Indication: PARKINSON^S DISEASE
     Dosage: MORNING DOSE: 9.50 ML??CONTINUOUS DOSE: 4.50 ML??EXTRA DOSE: 1.50 ML
     Route: 050
     Dates: start: 20161004
  4. MADOPAR HBS [Concomitant]
     Active Substance: BENSERAZIDE HYDROCHLORIDE\LEVODOPA
     Indication: PARKINSON^S DISEASE
     Route: 048
     Dates: start: 20161004, end: 20180218
  5. XATRAL [Concomitant]
     Active Substance: ALFUZOSIN
     Indication: PROSTATIC DISORDER
     Route: 048
     Dates: start: 20060101, end: 20180218

REACTIONS (3)
  - Vomiting [Unknown]
  - Death [Fatal]
  - Hypophagia [Unknown]

NARRATIVE: CASE EVENT DATE: 20180218
